FAERS Safety Report 18962513 (Version 4)
Quarter: 2021Q3

REPORT INFORMATION
  Report Type: Spontaneous
  Country: FR (occurrence: FR)
  Receive Date: 20210303
  Receipt Date: 20210928
  Transmission Date: 20211014
  Serious: Yes (Death, Other)
  Sender: FDA-Public Use
  Company Number: FR-MYLANLABS-2021M1012072

PATIENT
  Age: 89 Year
  Sex: Female
  Weight: 70 kg

DRUGS (6)
  1. COUMADINE [Interacting]
     Active Substance: WARFARIN SODIUM
     Indication: PRODUCT USED FOR UNKNOWN INDICATION
     Dosage: 1 MILLIGRAM
     Dates: start: 20210105
  2. COUMADINE [Interacting]
     Active Substance: WARFARIN SODIUM
     Dosage: 1 MILLIGRAM
     Dates: start: 20210120
  3. COUMADINE [Interacting]
     Active Substance: WARFARIN SODIUM
     Dosage: 1 MILLIGRAM
     Dates: start: 20210128
  4. COUMADINE [Interacting]
     Active Substance: WARFARIN SODIUM
     Dosage: 1 MILLIGRAM
     Dates: start: 20210202
  5. ECONAZOLE MYLAN 1%, CR?ME [Suspect]
     Active Substance: ECONAZOLE
     Indication: FUNGAL INFECTION
     Dosage: 1 TO 2 APPLICATIONS, MYLAN 1 CREAM
     Route: 003
     Dates: start: 20210126, end: 20210202
  6. COUMADINE [Interacting]
     Active Substance: WARFARIN SODIUM
     Dosage: 1 MILLIGRAM
     Dates: start: 20210203

REACTIONS (11)
  - Rectal haemorrhage [Unknown]
  - Internal haemorrhage [Fatal]
  - Melaena [Not Recovered/Not Resolved]
  - International normalised ratio increased [Fatal]
  - General physical health deterioration [Not Recovered/Not Resolved]
  - Diarrhoea haemorrhagic [Unknown]
  - Skin atrophy [Unknown]
  - Skin irritation [Unknown]
  - Haemorrhagic stroke [Not Recovered/Not Resolved]
  - Labelled drug-drug interaction medication error [Recovered/Resolved]
  - Product monitoring error [Recovered/Resolved]

NARRATIVE: CASE EVENT DATE: 20210202
